FAERS Safety Report 12288951 (Version 3)
Quarter: 2016Q3

REPORT INFORMATION
  Report Type: Spontaneous
  Country: FR (occurrence: FR)
  Receive Date: 20160421
  Receipt Date: 20160722
  Transmission Date: 20161109
  Serious: Yes (Disabling)
  Sender: FDA-Public Use
  Company Number: FR-ROCHE-1742718

PATIENT
  Age: 66 Year
  Sex: Male

DRUGS (2)
  1. MABTHERA [Suspect]
     Active Substance: RITUXIMAB
     Route: 042
     Dates: start: 2014, end: 201510
  2. MABTHERA [Suspect]
     Active Substance: RITUXIMAB
     Indication: MUSCULAR WEAKNESS
     Route: 042
     Dates: start: 20150527, end: 20150608

REACTIONS (1)
  - Progressive multifocal leukoencephalopathy [Not Recovered/Not Resolved]

NARRATIVE: CASE EVENT DATE: 201509
